FAERS Safety Report 7502006-2 (Version None)
Quarter: 2011Q2

REPORT INFORMATION
  Report Type: 
  Country: None (occurrence: None)
  Receive Date: 20110525
  Receipt Date: 20110512
  Transmission Date: 20111010
  Serious: Yes (Death, Hospitalization)
  Sender: FDA-Public Use
  Company Number: GB-RANBAXY-2011R1-44497

PATIENT

DRUGS (3)
  1. DOVOBET [Concomitant]
     Indication: PRODUCT USED FOR UNKNOWN INDICATION
     Dosage: UNK
     Route: 065
  2. RAMIPRIL [Suspect]
     Indication: HYPERTENSION
     Dosage: 1.25 MG, QD
     Route: 048
     Dates: start: 20110326, end: 20110420
  3. BENDROFLUAZIDE [Concomitant]
     Indication: PRODUCT USED FOR UNKNOWN INDICATION
     Dosage: UNK
     Route: 065

REACTIONS (9)
  - LIP SWELLING [None]
  - CONVULSION [None]
  - HYPOXIA [None]
  - LOCAL SWELLING [None]
  - ANGIOEDEMA [None]
  - PARAESTHESIA ORAL [None]
  - RESPIRATORY TRACT OEDEMA [None]
  - HYPERSENSITIVITY [None]
  - SWOLLEN TONGUE [None]
